FAERS Safety Report 9036849 (Version 1)
Quarter: 2013Q1

REPORT INFORMATION
  Report Type: Spontaneous
  Country: US (occurrence: None)
  Receive Date: 20130123
  Receipt Date: 20130123
  Transmission Date: 20140127
  Serious: Yes (Other)
  Sender: FDA-Public Use
  Company Number: None

PATIENT
  Age: 46 Year
  Sex: Female
  Weight: 51.21 kg

DRUGS (1)
  1. VICTOZA [Suspect]

REACTIONS (8)
  - Rash [None]
  - Pyrexia [None]
  - Leukocytosis [None]
  - Eosinophilia [None]
  - Lymphadenopathy [None]
  - Drug reaction with eosinophilia and systemic symptoms [None]
  - Hepatic enzyme abnormal [None]
  - Lymphoma [None]
